FAERS Safety Report 24413379 (Version 2)
Quarter: 2024Q4

REPORT INFORMATION
  Report Type: Spontaneous
  Country: FR (occurrence: FR)
  Receive Date: 20241008
  Receipt Date: 20241105
  Transmission Date: 20250115
  Serious: Yes (Death)
  Sender: NOVARTIS
  Company Number: FR-PFM-2024-04488

PATIENT
  Age: 63 Year
  Sex: Male
  Weight: 105 kg

DRUGS (2)
  1. CYCLOSPORINE [Suspect]
     Active Substance: CYCLOSPORINE
     Indication: Product used for unknown indication
     Dosage: UNK
     Route: 065
  2. TABELECLEUCEL [Suspect]
     Active Substance: TABELECLEUCEL
     Indication: Post transplant lymphoproliferative disorder
     Dosage: 2 DOSAGE FORM, CYCLIC
     Route: 042
     Dates: start: 20240723, end: 20240731

REACTIONS (2)
  - Infection [Fatal]
  - Acute graft versus host disease [Fatal]
